FAERS Safety Report 19473917 (Version 1)
Quarter: 2021Q2

REPORT INFORMATION
  Report Type: Spontaneous
  Country: TH (occurrence: TH)
  Receive Date: 20210629
  Receipt Date: 20210629
  Transmission Date: 20210717
  Serious: Yes (Hospitalization)
  Sender: FDA-Public Use
  Company Number: TH-PFIZER INC-2021201012

PATIENT
  Age: 75 Year
  Sex: Male

DRUGS (1)
  1. INLYTA [Suspect]
     Active Substance: AXITINIB
     Indication: RENAL CELL CARCINOMA
     Dosage: 5 MG, ONCE DAILY
     Route: 048
     Dates: start: 20210113, end: 20210208

REACTIONS (3)
  - Off label use [Unknown]
  - Mouth ulceration [Unknown]
  - Noninfective encephalitis [Unknown]
